FAERS Safety Report 13743386 (Version 2)
Quarter: 2017Q3

REPORT INFORMATION
  Report Type: Spontaneous
  Country: DK (occurrence: DK)
  Receive Date: 20170711
  Receipt Date: 20170919
  Transmission Date: 20171127
  Serious: Yes (Hospitalization)
  Sender: FDA-Public Use
  Company Number: DK-ABBVIE-17P-044-2031024-00

PATIENT
  Age: 8 Year
  Sex: Female
  Weight: 28.3 kg

DRUGS (1)
  1. PROCREN [Suspect]
     Active Substance: LEUPROLIDE ACETATE
     Indication: PRECOCIOUS PUBERTY
     Route: 058
     Dates: start: 20161222, end: 20170609

REACTIONS (3)
  - Injection site scar [Not Recovered/Not Resolved]
  - Injection site abscess sterile [Not Recovered/Not Resolved]
  - Injection site discolouration [Not Recovered/Not Resolved]

NARRATIVE: CASE EVENT DATE: 20170524
